FAERS Safety Report 5482324-2 (Version None)
Quarter: 2007Q4

REPORT INFORMATION
  Report Type: 
  Country: None (occurrence: None)
  Receive Date: 20071011
  Receipt Date: 20071004
  Transmission Date: 20080405
  Serious: Yes (Other)
  Sender: FDA-Public Use
  Company Number: US-AVENTIS-200717017US

PATIENT
  Sex: Male

DRUGS (3)
  1. KETEK [Suspect]
     Dates: start: 20070927, end: 20070928
  2. FLOMAX [Concomitant]
     Dosage: DOSE: UNK
     Route: 048
  3. ALLEGRA                            /01314201/ [Concomitant]
     Dosage: DOSE: UNK

REACTIONS (10)
  - ALANINE AMINOTRANSFERASE INCREASED [None]
  - ASPARTATE AMINOTRANSFERASE INCREASED [None]
  - BLOOD ALKALINE PHOSPHATASE INCREASED [None]
  - BLOOD BILIRUBIN INCREASED [None]
  - CHROMATURIA [None]
  - HEPATIC FUNCTION ABNORMAL [None]
  - NAUSEA [None]
  - OCULAR ICTERUS [None]
  - PRURITUS [None]
  - VISION BLURRED [None]
